FAERS Safety Report 22519325 (Version 1)
Quarter: 2023Q2

REPORT INFORMATION
  Report Type: Spontaneous
  Country: FR (occurrence: FR)
  Receive Date: 20230605
  Receipt Date: 20230605
  Transmission Date: 20230722
  Serious: Yes (Hospitalization)
  Sender: FDA-Public Use
  Company Number: None

PATIENT
  Age: 66 Year
  Sex: Male

DRUGS (3)
  1. LENALIDOMIDE [Suspect]
     Active Substance: LENALIDOMIDE
     Indication: Plasma cell myeloma
     Dosage: 21 DAYS/28
     Route: 065
     Dates: start: 202208, end: 202302
  2. MELPHALAN [Suspect]
     Active Substance: MELPHALAN
     Indication: Transplant
     Route: 065
     Dates: start: 20220414
  3. ELIQUIS [Concomitant]
     Active Substance: APIXABAN
     Indication: Product used for unknown indication

REACTIONS (1)
  - Cystitis ulcerative [Unknown]

NARRATIVE: CASE EVENT DATE: 20220401
